FAERS Safety Report 12430570 (Version 2)
Quarter: 2016Q2

REPORT INFORMATION
  Report Type: Spontaneous
  Country: DK (occurrence: DK)
  Receive Date: 20160602
  Receipt Date: 20160620
  Transmission Date: 20160815
  Serious: Yes (Hospitalization)
  Sender: FDA-Public Use
  Company Number: DK-ALLERGAN-1644801

PATIENT
  Age: 20 Year
  Sex: Male

DRUGS (2)
  1. TRIPTORELIN PAMOATE UNK [Suspect]
     Active Substance: TRIPTORELIN PAMOATE
     Indication: MUSCLE BUILDING THERAPY
     Dosage: UNK UNK, Q WEEK
     Route: 065
     Dates: start: 201303, end: 201506
  2. TESTOSTERONE. [Suspect]
     Active Substance: TESTOSTERONE
     Indication: MUSCLE BUILDING THERAPY
     Dosage: UNK UNK, Q WEEK
     Route: 065
     Dates: start: 201303, end: 201506

REACTIONS (7)
  - Alanine aminotransferase increased [Recovering/Resolving]
  - Heart rate increased [Unknown]
  - Polycythaemia [Recovered/Resolved]
  - Inappropriate schedule of drug administration [Unknown]
  - Left ventricular hypertrophy [Recovered/Resolved]
  - Atrial fibrillation [Recovered/Resolved]
  - Off label use [Unknown]

NARRATIVE: CASE EVENT DATE: 20140206
